FAERS Safety Report 4972665-7 (Version None)
Quarter: 2006Q1

REPORT INFORMATION
  Report Type: 
  Country: None (occurrence: None)
  Receive Date: 20060216
  Receipt Date: 20050801
  Transmission Date: 20060701
  Serious: Yes (Hospitalization)
  Sender: FDA-Public Use
  Company Number: 200508IM000358

PATIENT
  Age: 61 Year
  Sex: Male
  Weight: 142.4295 kg

DRUGS (9)
  1. BLINDED THERAPY (INTERFERON GAMMA-1B) [Suspect]
     Indication: IDIOPATHIC PULMONARY FIBROSIS
     Dosage: 200 UG, TIW, SUBCUTANEOUS
     Route: 058
     Dates: start: 20041228, end: 20050729
  2. ALBUTEROL SULFATE AUTOHALER [Concomitant]
  3. VITAMIN [Concomitant]
  4. IBUPROFEN [Concomitant]
  5. CLEMASTINE FUMARATE [Concomitant]
  6. ZETIA [Concomitant]
  7. GLYBURIDE [Concomitant]
  8. NORVASC [Concomitant]
  9. APAP TAB [Concomitant]

REACTIONS (2)
  - DYSPNOEA [None]
  - PULMONARY OEDEMA [None]
